FAERS Safety Report 8600822-7 (Version None)
Quarter: 2012Q3

REPORT INFORMATION
  Report Type: 
  Country: None (occurrence: None)
  Receive Date: 20120817
  Receipt Date: 20120813
  Transmission Date: 20120928
  Serious: Yes (Hospitalization)
  Sender: FDA-Public Use
  Company Number: 2012SP002263

PATIENT
  Age: 61 Year
  Sex: Male

DRUGS (9)
  1. CITALOPRAM [Concomitant]
     Indication: DEPRESSION
  2. CELEBREX [Concomitant]
     Indication: ARTHRITIS
  3. LUNESTA [Suspect]
     Route: 048
     Dates: start: 20101201, end: 20120301
  4. LUNESTA [Suspect]
     Indication: SLEEP DISORDER
     Route: 048
     Dates: start: 20120401
  5. TRAZODONE HYDROCHLORIDE [Concomitant]
     Indication: SLEEP DISORDER
     Dates: start: 20120301, end: 20120401
  6. OXYCODONE HCL [Concomitant]
     Indication: PAIN
  7. ZANTAC [Concomitant]
     Indication: GASTROOESOPHAGEAL REFLUX DISEASE
  8. PLAVIX [Concomitant]
     Indication: ANTICOAGULANT THERAPY
     Dates: start: 20110801
  9. LOSARTAN POTASSIUM [Concomitant]
     Indication: HYPERTENSION

REACTIONS (7)
  - MUSCLE ATROPHY [None]
  - ABNORMAL DREAMS [None]
  - PERIPHERAL COLDNESS [None]
  - MIDDLE INSOMNIA [None]
  - ARTERIAL THROMBOSIS LIMB [None]
  - INAPPROPRIATE SCHEDULE OF DRUG ADMINISTRATION [None]
  - ARTHRALGIA [None]
